FAERS Safety Report 9890309 (Version 2)
Quarter: 2014Q2

REPORT INFORMATION
  Report Type: Spontaneous
  Country: NL (occurrence: NL)
  Receive Date: 20140212
  Receipt Date: 20140422
  Transmission Date: 20141212
  Serious: Yes (Death)
  Sender: FDA-Public Use
  Company Number: NL-IPSEN BIOPHARMACEUTICALS, INC.-2014-0692

PATIENT
  Age: 56 Year
  Sex: Female

DRUGS (2)
  1. SOMATULINE AUTOSOLUTION 60MG [Suspect]
     Indication: GASTRIC DISORDER
     Dosage: 60 MG
     Route: 058
     Dates: start: 20140120, end: 20140120
  2. SOMATULINE AUTOSOLUTION 60MG [Suspect]
     Indication: OFF LABEL USE

REACTIONS (1)
  - Disease progression [Fatal]
